FAERS Safety Report 20035821 (Version 1)
Quarter: 2021Q4

REPORT INFORMATION
  Report Type: Spontaneous
  Country: US (occurrence: US)
  Receive Date: 20211105
  Receipt Date: 20211105
  Transmission Date: 20220303
  Serious: Yes (Life-Threatening, Hospitalization)
  Sender: FDA-Public Use
  Company Number: US-JNJFOC-20211048793

PATIENT
  Age: 22 Year
  Sex: Male
  Weight: 77 kg

DRUGS (2)
  1. TYLENOL EXTRA STRENGTH [Suspect]
     Active Substance: ACETAMINOPHEN
     Indication: Suicide attempt
     Dosage: TOTAL DOSE OF 75000 MG OF ACETAMINOPHEN ON 04-FEB-2001 AT 21:00; ADMITS TO 3 HANDFULS OF TYLENOL EXT
     Route: 048
  2. PEPTO-BISMOL [Concomitant]
     Active Substance: BISMUTH SUBSALICYLATE
     Indication: Product used for unknown indication
     Route: 065
     Dates: end: 20010207

REACTIONS (11)
  - Suicide attempt [Recovered/Resolved]
  - Seizure [Recovered/Resolved]
  - Chest X-ray abnormal [Recovered/Resolved]
  - Pleural effusion [Recovered/Resolved]
  - Gallbladder enlargement [Recovered/Resolved]
  - Enterococcal infection [Recovered/Resolved]
  - Enterobacter test positive [Recovered/Resolved]
  - Candida infection [Recovered/Resolved]
  - Acute kidney injury [Recovered/Resolved]
  - Acute hepatic failure [Recovered/Resolved]
  - Intentional overdose [Recovered/Resolved]

NARRATIVE: CASE EVENT DATE: 20010204
